FAERS Safety Report 5397853-X (Version None)
Quarter: 2007Q3

REPORT INFORMATION
  Report Type: 
  Country: None (occurrence: None)
  Receive Date: 20070723
  Receipt Date: 20070723
  Transmission Date: 20080115
  Serious: Yes (Other)
  Sender: FDA-Public Use
  Company Number: None

PATIENT
  Age: 57 Year
  Sex: Male

DRUGS (13)
  1. REVLIMID [Suspect]
     Indication: MULTIPLE MYELOMA
     Dosage: 10MG DAILY X21D/28D PO
     Route: 048
     Dates: start: 20070221, end: 20070307
  2. PROCRIT [Concomitant]
  3. DEXAMETHASONE 0.5MG TAB [Concomitant]
  4. SENNA [Concomitant]
  5. BISACODYL [Concomitant]
  6. FAMOTIDINE [Concomitant]
  7. FENTANYL [Concomitant]
  8. MORPHINE SULFATE [Concomitant]
  9. DIAZEPAM [Concomitant]
  10. LORAZEPAM [Concomitant]
  11. PROCHLORPERAZINE [Concomitant]
  12. VICODIN [Concomitant]
  13. ATENOLOL [Concomitant]

REACTIONS (2)
  - LEUKOPENIA [None]
  - THROMBOCYTOPENIA [None]
